FAERS Safety Report 12375021 (Version 1)
Quarter: 2016Q2

REPORT INFORMATION
  Report Type: Report from Study
  Country: JP (occurrence: JP)
  Receive Date: 20160517
  Receipt Date: 20160517
  Transmission Date: 20160815
  Serious: Yes (Other)
  Sender: FDA-Public Use
  Company Number: JP-AMGEN-JPNCT2016062547

PATIENT
  Sex: Male

DRUGS (16)
  1. DARBEPOETIN ALFA [Suspect]
     Active Substance: DARBEPOETIN ALFA
     Dosage: 10 MUG, QD
     Route: 065
     Dates: start: 20150810
  2. DARBEPOETIN ALFA [Suspect]
     Active Substance: DARBEPOETIN ALFA
     Dosage: 15 MUG, QD
     Route: 058
     Dates: start: 20150330
  3. DARBEPOETIN ALFA [Suspect]
     Active Substance: DARBEPOETIN ALFA
     Dosage: 30 MUG, QD
     Route: 065
     Dates: start: 20151005
  4. DARBEPOETIN ALFA [Suspect]
     Active Substance: DARBEPOETIN ALFA
     Indication: CHRONIC KIDNEY DISEASE
     Dosage: 30 MUG, QD
     Route: 065
     Dates: start: 20150316
  5. DARBEPOETIN ALFA [Suspect]
     Active Substance: DARBEPOETIN ALFA
     Dosage: 20 MUG, QD
     Route: 065
     Dates: start: 20150907
  6. DARBEPOETIN ALFA [Suspect]
     Active Substance: DARBEPOETIN ALFA
     Dosage: 20 MUG, QD
     Route: 065
     Dates: start: 20151130
  7. DARBEPOETIN ALFA [Suspect]
     Active Substance: DARBEPOETIN ALFA
     Dosage: 10 MUG, QD
     Route: 065
     Dates: start: 20160219
  8. DARBEPOETIN ALFA [Suspect]
     Active Substance: DARBEPOETIN ALFA
     Dosage: 10 MUG, QD
     Route: 058
     Dates: start: 20150413
  9. DARBEPOETIN ALFA [Suspect]
     Active Substance: DARBEPOETIN ALFA
     Dosage: 10 MUG, QD
     Route: 065
     Dates: start: 20150427
  10. DARBEPOETIN ALFA [Suspect]
     Active Substance: DARBEPOETIN ALFA
     Dosage: 10 MUG, QD
     Route: 065
     Dates: start: 20150608
  11. DARBEPOETIN ALFA [Suspect]
     Active Substance: DARBEPOETIN ALFA
     Dosage: 30 MUG, QD
     Route: 065
     Dates: start: 20151102
  12. DARBEPOETIN ALFA [Suspect]
     Active Substance: DARBEPOETIN ALFA
     Dosage: 20 MUG, QD
     Route: 065
     Dates: start: 20160122
  13. DARBEPOETIN ALFA [Suspect]
     Active Substance: DARBEPOETIN ALFA
     Dosage: 10 MUG, QD
     Route: 058
     Dates: start: 20150511
  14. DARBEPOETIN ALFA [Suspect]
     Active Substance: DARBEPOETIN ALFA
     Dosage: 10 MUG, QD
     Route: 065
     Dates: start: 20150706
  15. DARBEPOETIN ALFA [Suspect]
     Active Substance: DARBEPOETIN ALFA
     Dosage: 20 MUG, QD
     Route: 065
     Dates: start: 20151225
  16. DARBEPOETIN ALFA [Suspect]
     Active Substance: DARBEPOETIN ALFA
     Dosage: 10 UNK, QD
     Route: 065
     Dates: start: 20150526

REACTIONS (1)
  - Cardiac failure [Recovered/Resolved]

NARRATIVE: CASE EVENT DATE: 20151102
